FAERS Safety Report 23391181 (Version 1)
Quarter: 2024Q1

REPORT INFORMATION
  Report Type: Spontaneous
  Country: US (occurrence: US)
  Receive Date: 20240111
  Receipt Date: 20240111
  Transmission Date: 20240410
  Serious: Yes (Hospitalization, Other)
  Sender: FDA-Public Use
  Company Number: US-MLMSERVICE-20231218-4731565-1

PATIENT
  Age: 71 Year
  Sex: Female

DRUGS (3)
  1. ALLOPURINOL [Suspect]
     Active Substance: ALLOPURINOL
     Indication: Gout
  2. INDOMETHACIN [Concomitant]
     Active Substance: INDOMETHACIN
     Indication: Gout
  3. COLCHICINE [Concomitant]
     Active Substance: COLCHICINE
     Indication: Gout

REACTIONS (2)
  - Drug reaction with eosinophilia and systemic symptoms [Unknown]
  - Chronic kidney disease [Unknown]
